FAERS Safety Report 9265740 (Version 1)
Quarter: 2013Q2

REPORT INFORMATION
  Report Type: Spontaneous
  Country: US (occurrence: US)
  Receive Date: 20130501
  Receipt Date: 20130501
  Transmission Date: 20140414
  Serious: Yes (Hospitalization, Other)
  Sender: FDA-Public Use
  Company Number: US-TEVA-401719USA

PATIENT
  Sex: Female

DRUGS (1)
  1. TREANDA [Suspect]
     Dates: start: 20130403

REACTIONS (3)
  - Cardiogenic shock [Unknown]
  - Respiratory failure [Unknown]
  - Rash [Unknown]
